FAERS Safety Report 7358867-3 (Version None)
Quarter: 2011Q1

REPORT INFORMATION
  Report Type: 
  Country: None (occurrence: None)
  Receive Date: 20110317
  Receipt Date: 20110308
  Transmission Date: 20110831
  Serious: Yes (Hospitalization)
  Sender: FDA-Public Use
  Company Number: B0706221A

PATIENT

DRUGS (5)
  1. TROMBYL [Concomitant]
  2. ENALAPRIL [Concomitant]
  3. AVANDIA [Suspect]
     Route: 065
  4. METFORMIN HCL [Concomitant]
  5. PRAVASTATIN [Concomitant]

REACTIONS (4)
  - ARTERIOSCLEROSIS [None]
  - INTERMITTENT CLAUDICATION [None]
  - VASCULAR INSUFFICIENCY [None]
  - NECROSIS [None]
